FAERS Safety Report 7077280-X (Version None)
Quarter: 2010Q4

REPORT INFORMATION
  Report Type: 
  Country: None (occurrence: None)
  Receive Date: 20101101
  Receipt Date: 20101020
  Transmission Date: 20110411
  Serious: Yes (Other)
  Sender: FDA-Public Use
  Company Number: JP-ACTELION-A-CH2010-40885

PATIENT
  Age: 52 Year
  Sex: Female

DRUGS (1)
  1. TRACLEER [Suspect]
     Indication: PULMONARY HYPERTENSION
     Dosage: UNK
     Route: 048
     Dates: start: 20060101

REACTIONS (8)
  - ANTI-CYCLIC CITRULLINATED PEPTIDE ANTIBODY POSITIVE [None]
  - ANTINUCLEAR ANTIBODY POSITIVE [None]
  - BLOOD CREATINE PHOSPHOKINASE INCREASED [None]
  - DERMATOMYOSITIS [None]
  - INTERSTITIAL LUNG DISEASE [None]
  - PAIN [None]
  - PLATELET COUNT DECREASED [None]
  - RHEUMATOID ARTHRITIS [None]
